FAERS Safety Report 4420968-7 (Version None)
Quarter: 2004Q3

REPORT INFORMATION
  Report Type: 
  Country: None (occurrence: None)
  Receive Date: 20040809
  Receipt Date: 20040707
  Transmission Date: 20050211
  Serious: Yes (Hospitalization)
  Sender: FDA-Public Use
  Company Number: MY-MERCK-0407MYS00003

PATIENT
  Sex: Female

DRUGS (3)
  1. ALLOPURINOL [Suspect]
     Indication: GOUT
     Route: 048
     Dates: end: 20040629
  2. COZAAR [Suspect]
     Indication: HYPERTENSION
     Route: 048
     Dates: start: 20040601, end: 20040707
  3. COZAAR [Suspect]
     Route: 048
     Dates: start: 20040601, end: 20040707

REACTIONS (2)
  - ANGIONEUROTIC OEDEMA [None]
  - ERYTHEMA MULTIFORME [None]
